FAERS Safety Report 9060527 (Version 1)
Quarter: 2013Q1

REPORT INFORMATION
  Report Type: Other
  Country: NO (occurrence: NO)
  Receive Date: 20130212
  Receipt Date: 20130212
  Transmission Date: 20140127
  Serious: Yes (Death, Other)
  Sender: FDA-Public Use
  Company Number: NO-NICOBRDEVP-2013-02213

PATIENT
  Sex: Female

DRUGS (5)
  1. AMPICILLIN [Suspect]
     Indication: PRODUCT USED FOR UNKNOWN INDICATION
     Dosage: UNK
     Route: 065
  2. GENTAMICIN SULFATE (UNKNOWN) [Suspect]
     Indication: PRODUCT USED FOR UNKNOWN INDICATION
     Dosage: UNK
     Route: 065
  3. ABBOTICIN [Suspect]
     Indication: PRODUCT USED FOR UNKNOWN INDICATION
     Dosage: UNK
     Route: 065
  4. ERY-MAX [Suspect]
     Indication: PRODUCT USED FOR UNKNOWN INDICATION
     Dosage: UNK
     Route: 065
  5. YASMIN [Suspect]
     Indication: PRODUCT USED FOR UNKNOWN INDICATION
     Dosage: UNK
     Route: 065

REACTIONS (8)
  - Abortion induced [Fatal]
  - Anencephaly [Fatal]
  - Cleft lip and palate [Not Recovered/Not Resolved]
  - Congenital central nervous system anomaly [Fatal]
  - Foetal exposure during pregnancy [Fatal]
  - Multiple congenital abnormalities [Fatal]
  - Exomphalos [Fatal]
  - Spina bifida cystica [Fatal]
